FAERS Safety Report 7148086-8 (Version None)
Quarter: 2010Q4

REPORT INFORMATION
  Report Type: 
  Country: None (occurrence: None)
  Receive Date: 20101209
  Receipt Date: 20100708
  Transmission Date: 20110411
  Serious: No
  Sender: FDA-Public Use
  Company Number: US-ABBOTT-10P-163-0648895-00

PATIENT
  Sex: Male

DRUGS (1)
  1. VICODIN ES [Suspect]
     Indication: ROTATOR CUFF REPAIR
     Dosage: 750/7.5MG
     Route: 048
     Dates: start: 20100526

REACTIONS (1)
  - DRUG INEFFECTIVE [None]
